FAERS Safety Report 24820162 (Version 1)
Quarter: 2025Q1

REPORT INFORMATION
  Report Type: Report from Study
  Country: US (occurrence: US)
  Receive Date: 20250108
  Receipt Date: 20250108
  Transmission Date: 20250409
  Serious: Yes (Hospitalization, Other)
  Sender: TAKEDA
  Company Number: US-TAKEDA-US201914329

PATIENT
  Age: 71 Year
  Sex: Female
  Weight: 64 kg

DRUGS (9)
  1. TEDUGLUTIDE [Suspect]
     Active Substance: TEDUGLUTIDE
     Indication: Short-bowel syndrome
     Dosage: 3.5 MILLIGRAM, QD
     Dates: start: 20170117
  2. TEDUGLUTIDE [Suspect]
     Active Substance: TEDUGLUTIDE
  3. TEDUGLUTIDE [Suspect]
     Active Substance: TEDUGLUTIDE
  4. TEDUGLUTIDE [Suspect]
     Active Substance: TEDUGLUTIDE
  5. ALBUTEROL SULFATE [Concomitant]
     Active Substance: ALBUTEROL SULFATE
     Indication: Dyspepsia
  6. TERBINAFINE [Concomitant]
     Active Substance: TERBINAFINE
     Indication: Crohn^s disease
     Dosage: 250 MILLIGRAM, BID
  7. POTASSIUM CHLORIDE\SODIUM CHLORIDE [Concomitant]
     Active Substance: POTASSIUM CHLORIDE\SODIUM CHLORIDE
     Indication: Electrolyte imbalance
     Dosage: UNK UNK, QD
  8. DILTIAZEM [Concomitant]
     Active Substance: DILTIAZEM
     Indication: Hypertension
     Dosage: 240 MILLIGRAM, QD
  9. CYANOCOBALAMIN [Concomitant]
     Active Substance: CYANOCOBALAMIN
     Indication: Supplementation therapy

REACTIONS (2)
  - Pneumonia [Recovered/Resolved]
  - Pleural effusion [Recovered/Resolved]

NARRATIVE: CASE EVENT DATE: 20180910
